FAERS Safety Report 14160927 (Version 2)
Quarter: 2018Q1

REPORT INFORMATION
  Report Type: Spontaneous
  Country: NO (occurrence: NO)
  Receive Date: 20171106
  Receipt Date: 20180126
  Transmission Date: 20180508
  Serious: Yes (Hospitalization, Other)
  Sender: FDA-Public Use
  Company Number: NO-SHIRE-NO201725607

PATIENT

DRUGS (4)
  1. REVESTIVE [Suspect]
     Active Substance: TEDUGLUTIDE
     Indication: SHORT-BOWEL SYNDROME
     Dosage: UNK UNK, 3X/DAY:TID
     Route: 065
  2. ORS                                /01239601/ [Concomitant]
     Indication: PRODUCT USED FOR UNKNOWN INDICATION
  3. PN (PROTOPORPHYRIN DISODIUM) [Concomitant]
     Active Substance: PROTOPORPHYRIN DISODIUM
     Indication: PRODUCT USED FOR UNKNOWN INDICATION
  4. IMODIUM [Concomitant]
     Active Substance: LOPERAMIDE HYDROCHLORIDE
     Indication: PRODUCT USED FOR UNKNOWN INDICATION

REACTIONS (7)
  - Hypophosphataemia [Unknown]
  - Intestinal perforation [Unknown]
  - Chromaturia [Unknown]
  - Faecal vomiting [Unknown]
  - Urine output increased [Unknown]
  - Dry mouth [Unknown]
  - Hypokalaemia [Unknown]
